FAERS Safety Report 17303033 (Version 1)
Quarter: 2020Q1

REPORT INFORMATION
  Report Type: Spontaneous
  Country: US (occurrence: US)
  Receive Date: 20200122
  Receipt Date: 20200122
  Transmission Date: 20200409
  Serious: No
  Sender: FDA-Public Use
  Company Number: US-BRISTOL-MYERS SQUIBB COMPANY-BMS-2020-005368

PATIENT
  Sex: Female
  Weight: 54.43 kg

DRUGS (1)
  1. ELIQUIS [Suspect]
     Active Substance: APIXABAN
     Indication: CEREBROVASCULAR ACCIDENT PROPHYLAXIS
     Dosage: ^5 AT NIGHT^, AND ^2.5 DURING THE DAY
     Route: 048

REACTIONS (3)
  - Off label use [Unknown]
  - Asthenia [Unknown]
  - Diplopia [Unknown]
